FAERS Safety Report 23878626 (Version 1)
Quarter: 2024Q2

REPORT INFORMATION
  Report Type: Spontaneous
  Country: US (occurrence: None)
  Receive Date: 20240520
  Receipt Date: 20240520
  Transmission Date: 20240716
  Serious: Yes (Hospitalization, Other)
  Sender: FDA-Public Use
  Company Number: None

PATIENT
  Age: 76 Year
  Sex: Male
  Weight: 99 kg

DRUGS (1)
  1. SKYRIZI [Suspect]
     Active Substance: RISANKIZUMAB-RZAA
     Dosage: 600 MG
     Dates: start: 20240126

REACTIONS (6)
  - Cystoprostatectomy [None]
  - Infection [None]
  - Dehydration [None]
  - Acute kidney injury [None]
  - Impaired healing [None]
  - Lymphadenectomy [None]

NARRATIVE: CASE EVENT DATE: 20240220
